FAERS Safety Report 9841278 (Version 1)
Quarter: 2013Q4

REPORT INFORMATION
  Report Type: Spontaneous
  Country: US (occurrence: None)
  Receive Date: 20131219
  Receipt Date: 20131219
  Transmission Date: 20140711
  Serious: Yes (Other)
  Sender: FDA-Public Use
  Company Number: 163-20785-12102693

PATIENT
  Age: 47 Year
  Sex: Male

DRUGS (4)
  1. THALOMID [Suspect]
     Indication: PLASMA CELL MYELOMA
     Dosage: 2 IN 1 D
     Route: 048
     Dates: start: 20120925
  2. ROBITUSSIN CHEST CONGESTION [Concomitant]
  3. LOPRESSOR [Concomitant]
  4. LEVAQUIN [Concomitant]

REACTIONS (2)
  - Cardiac failure [None]
  - Bradycardia [None]
